FAERS Safety Report 18234022 (Version 5)
Quarter: 2022Q3

REPORT INFORMATION
  Report Type: Spontaneous
  Country: CO (occurrence: CO)
  Receive Date: 20200904
  Receipt Date: 20220713
  Transmission Date: 20221026
  Serious: Yes (Other)
  Sender: FDA-Public Use
  Company Number: CO-GLAXOSMITHKLINE-CO2020AMR175035

PATIENT

DRUGS (1)
  1. BELIMUMAB [Suspect]
     Active Substance: BELIMUMAB
     Indication: Systemic lupus erythematosus
     Dosage: UNK,120 MG/S/I
     Dates: start: 20190601, end: 20200918

REACTIONS (8)
  - COVID-19 [Recovering/Resolving]
  - Coronavirus test positive [Recovering/Resolving]
  - Malaise [Recovering/Resolving]
  - Anosmia [Recovering/Resolving]
  - Decreased appetite [Recovering/Resolving]
  - Nasal congestion [Recovering/Resolving]
  - Ageusia [Recovering/Resolving]
  - Patient isolation [Unknown]

NARRATIVE: CASE EVENT DATE: 20200822
